FAERS Safety Report 18640600 (Version 4)
Quarter: 2021Q3

REPORT INFORMATION
  Report Type: Report from Study
  Country: None (occurrence: FR)
  Receive Date: 20201221
  Receipt Date: 20210906
  Transmission Date: 20211014
  Serious: Yes (Other)
  Sender: FDA-Public Use
  Company Number: FR-ABBVIE-19K-056-3201338-00

PATIENT
  Age: 76 Year
  Sex: Male
  Weight: 63 kg

DRUGS (21)
  1. POTASSIUM [Concomitant]
     Active Substance: POTASSIUM
     Indication: PROPHYLAXIS
     Dates: start: 2019, end: 20200623
  2. INSPRA [Concomitant]
     Active Substance: EPLERENONE
     Indication: CARDIAC FAILURE
     Dates: start: 20190904, end: 20200623
  3. RITUXIMAB. [Concomitant]
     Active Substance: RITUXIMAB
     Dates: start: 20200420, end: 20200420
  4. EPLERENONE. [Concomitant]
     Active Substance: EPLERENONE
     Indication: CARDIAC FAILURE
     Dates: start: 20190904, end: 20200623
  5. VENCLYXTO [Suspect]
     Active Substance: VENETOCLAX
     Indication: CHRONIC LYMPHOCYTIC LEUKAEMIA
     Route: 048
     Dates: start: 20191127, end: 20191203
  6. VENCLYXTO [Suspect]
     Active Substance: VENETOCLAX
     Route: 048
     Dates: start: 20191204, end: 20191210
  7. FUROSEMIDE. [Concomitant]
     Active Substance: FUROSEMIDE
     Indication: HYPERTENSION
     Dates: start: 2000
  8. RITUXIMAB. [Concomitant]
     Active Substance: RITUXIMAB
     Dates: start: 20200518, end: 20200518
  9. VENCLYXTO [Suspect]
     Active Substance: VENETOCLAX
     Route: 048
     Dates: start: 20191218, end: 20191226
  10. VENCLYXTO [Suspect]
     Active Substance: VENETOCLAX
     Route: 048
     Dates: start: 20200115, end: 20200415
  11. BACTRIM [Concomitant]
     Active Substance: SULFAMETHOXAZOLE\TRIMETHOPRIM
     Indication: INFECTION PROPHYLAXIS
     Dates: start: 20140805
  12. RITUXIMAB. [Concomitant]
     Active Substance: RITUXIMAB
     Dates: start: 20200323, end: 20200323
  13. APIXABAN [Concomitant]
     Active Substance: APIXABAN
     Indication: ARRHYTHMIA
     Dates: start: 2015, end: 20200623
  14. LANSOPRAZOLE. [Concomitant]
     Active Substance: LANSOPRAZOLE
     Indication: PROPHYLAXIS
     Dates: start: 2015, end: 20200312
  15. VENCLYXTO [Suspect]
     Active Substance: VENETOCLAX
     Route: 048
     Dates: start: 20191211, end: 20191217
  16. VENCLYXTO [Suspect]
     Active Substance: VENETOCLAX
     Route: 048
     Dates: start: 20200416
  17. SPECIAFOLDINE [Concomitant]
     Active Substance: FOLIC ACID
     Indication: GASTROINTESTINAL DISORDER PROPHYLAXIS
     Dates: start: 2019, end: 20200312
  18. ZELITREX [Concomitant]
     Active Substance: VALACYCLOVIR HYDROCHLORIDE
     Indication: INFECTION PROPHYLAXIS
     Dates: start: 20140805
  19. VENCLYXTO [Suspect]
     Active Substance: VENETOCLAX
     Route: 048
     Dates: start: 20191227, end: 20200106
  20. BISOPROLOL [Concomitant]
     Active Substance: BISOPROLOL
     Indication: HYPERTENSION
     Dates: start: 2013
  21. RITUXIMAB. [Concomitant]
     Active Substance: RITUXIMAB
     Indication: CHRONIC LYMPHOCYTIC LEUKAEMIA
     Dates: start: 20200224, end: 20200224

REACTIONS (13)
  - Basal cell carcinoma [Recovered/Resolved]
  - Bowen^s disease [Recovered/Resolved]
  - Renal failure [Recovered/Resolved]
  - Oedema [Recovered/Resolved]
  - Inguinal hernia [Not Recovered/Not Resolved]
  - Skin lesion [Not Recovered/Not Resolved]
  - Pain in extremity [Not Recovered/Not Resolved]
  - Neutropenia [Recovered/Resolved]
  - Diarrhoea [Not Recovered/Not Resolved]
  - Neutropenia [Not Recovered/Not Resolved]
  - Diarrhoea [Recovered/Resolved]
  - Lymphopenia [Not Recovered/Not Resolved]
  - Tricuspid valve disease [Recovered/Resolved]

NARRATIVE: CASE EVENT DATE: 20191130
